FAERS Safety Report 4656331-3 (Version None)
Quarter: 2005Q2

REPORT INFORMATION
  Report Type: 
  Country: None (occurrence: None)
  Receive Date: 20050509
  Receipt Date: 20050408
  Transmission Date: 20051028
  Serious: No
  Sender: FDA-Public Use
  Company Number: US-GLAXOSMITHKLINE-A0553361A

PATIENT
  Sex: Male

DRUGS (1)
  1. AVANDAMET [Suspect]
     Route: 048
     Dates: start: 20050223

REACTIONS (4)
  - BLOOD GLUCOSE INCREASED [None]
  - CHILLS [None]
  - DRUG INEFFECTIVE [None]
  - PERIPHERAL COLDNESS [None]
